FAERS Safety Report 19959221 (Version 1)
Quarter: 2021Q4

REPORT INFORMATION
  Report Type: Spontaneous
  Country: US (occurrence: US)
  Receive Date: 20211012
  Receipt Date: 20211012
  Transmission Date: 20220303
  Serious: Yes (Hospitalization)
  Sender: FDA-Public Use
  Company Number: None

PATIENT
  Sex: Male

DRUGS (1)
  1. ESBRIET [Suspect]
     Active Substance: PIRFENIDONE
     Indication: Product used for unknown indication
     Dosage: ?          OTHER FREQUENCY:SEE B.6(PAGE2);
     Route: 048
     Dates: start: 20200317

REACTIONS (4)
  - Cardiac failure congestive [None]
  - Wheezing [None]
  - Hyperventilation [None]
  - Sepsis [None]
